FAERS Safety Report 20819994 (Version 1)
Quarter: 2022Q2

REPORT INFORMATION
  Report Type: Report from Study
  Country: KR (occurrence: KR)
  Receive Date: 20220512
  Receipt Date: 20220512
  Transmission Date: 20220721
  Serious: Yes (Other)
  Sender: FDA-Public Use
  Company Number: KR-NOVARTISPH-NVSC2022KR012494

PATIENT
  Age: 52 Year
  Sex: Female

DRUGS (18)
  1. KISQALI [Suspect]
     Active Substance: RIBOCICLIB
     Indication: Breast cancer metastatic
     Dosage: 600 MG, QD
     Route: 048
     Dates: start: 20211018, end: 20211108
  2. KISQALI [Suspect]
     Active Substance: RIBOCICLIB
     Dosage: 400 MG, QD
     Route: 048
     Dates: start: 20211117, end: 20211201
  3. BRETRA [Concomitant]
     Indication: Breast cancer
     Dosage: 2.5 MG, QD
     Route: 048
     Dates: start: 20211018, end: 20211116
  4. BRETRA [Concomitant]
     Dosage: 2.5 MG, QD
     Route: 048
     Dates: start: 20211117, end: 20211201
  5. BRETRA [Concomitant]
     Dosage: 2.5 MG, QD
     Route: 048
     Dates: start: 20211216
  6. FILGRASTIM [Concomitant]
     Active Substance: FILGRASTIM
     Indication: Leukopenia
     Dosage: 150 UG, QD (150/0.6 UG/ML)
     Route: 058
     Dates: start: 20211101, end: 20211101
  7. FILGRASTIM [Concomitant]
     Active Substance: FILGRASTIM
     Dosage: 150 UG, QD  (150/0.6 UG/ML)
     Route: 058
     Dates: start: 20211115, end: 20211115
  8. URSODIOL [Concomitant]
     Active Substance: URSODIOL
     Indication: AST/ALT ratio abnormal
     Dosage: 300 MG, QD
     Route: 048
     Dates: start: 20211202
  9. ORNITHINE ASPARTATE [Concomitant]
     Active Substance: ORNITHINE ASPARTATE
     Indication: AST/ALT ratio abnormal
     Dosage: 2000 MG, QD
     Route: 042
     Dates: start: 20211202, end: 20211206
  10. HEPATAMINE [Concomitant]
     Active Substance: ALANINE\ARGININE\CYSTEINE\GLYCINE\HISTIDINE\ISOLEUCINE\LEUCINE\LYSINE\METHIONINE\PHENYLALANINE\PROLI
     Indication: AST/ALT ratio abnormal
     Dosage: 500 ML, QD
     Route: 042
     Dates: start: 20211202, end: 20211202
  11. PENNEL [Concomitant]
     Indication: AST/ALT ratio abnormal
     Dosage: 3 DOSAGE FORM, QD
     Route: 048
     Dates: start: 20211209
  12. BEECOM HEXA [Concomitant]
     Indication: Prophylaxis
     Dosage: 2 ML, QD
     Route: 042
     Dates: start: 20211202, end: 20211202
  13. ASCORBIC ACID [Concomitant]
     Active Substance: ASCORBIC ACID
     Indication: Prophylaxis
     Dosage: 300 MG, QD
     Route: 042
     Dates: start: 20211202, end: 20211202
  14. LACTULOSE [Concomitant]
     Active Substance: LACTULOSE
     Indication: Prophylaxis
     Dosage: 15 ML, QD
     Route: 048
     Dates: start: 20211206, end: 20211206
  15. MOSAPRIDE CITRATE [Concomitant]
     Active Substance: MOSAPRIDE CITRATE
     Indication: Prophylaxis
     Dosage: 5 MG, QD
     Route: 042
     Dates: start: 20211209
  16. ALMAGEL [Concomitant]
     Indication: Prophylaxis
     Dosage: 15 ML, QD, (SUSPENSION)
     Route: 048
     Dates: start: 20211210
  17. PHENIRAMINE [Concomitant]
     Active Substance: PHENIRAMINE
     Indication: Prophylaxis
     Dosage: 4 MG, QD
     Route: 042
     Dates: start: 20211215, end: 20211215
  18. DEXAMETHASONE SODIUM PHOSPHATE [Concomitant]
     Active Substance: DEXAMETHASONE SODIUM PHOSPHATE
     Indication: Prophylaxis
     Dosage: 5 MG, QD
     Route: 042
     Dates: start: 20211215, end: 20211215

REACTIONS (2)
  - Electrocardiogram QT prolonged [Not Recovered/Not Resolved]
  - Ventricular tachycardia [Not Recovered/Not Resolved]

NARRATIVE: CASE EVENT DATE: 20211117
